FAERS Safety Report 4304301-7 (Version None)
Quarter: 2004Q1

REPORT INFORMATION
  Report Type: 
  Country: None (occurrence: None)
  Receive Date: 20040224
  Receipt Date: 20040218
  Transmission Date: 20041129
  Serious: Yes (Hospitalization)
  Sender: FDA-Public Use
  Company Number: 04OES007465/MP04-018

PATIENT
  Age: 55 Year
  Sex: Female

DRUGS (2)
  1. ESTRADIOL [Suspect]
     Indication: MENOPAUSE
     Dosage: 50 UG
     Route: 062
  2. COLPRONE TAB [Concomitant]

REACTIONS (2)
  - RETINAL TEAR [None]
  - VISION BLURRED [None]
